FAERS Safety Report 6946741 (Version 5)
Quarter: 2012Q4

REPORT INFORMATION
  Report Type: Report from Study
  Country: FR (occurrence: FR)
  Receive Date: 20090320
  Receipt Date: 20121011
  Transmission Date: 20130627
  Serious: Yes (Death, Life-Threatening, Other)
  Sender: FDA-Public Use
  Company Number: FR-JNJFOC-20090303133

PATIENT
  Age: 33 Year
  Sex: Female
  Weight: 48 kg

DRUGS (6)
  1. REMICADE [Suspect]
     Indication: CROHN^S DISEASE
     Route: 042
     Dates: start: 20070618
  2. REMICADE [Suspect]
     Indication: CROHN^S DISEASE
     Route: 042
     Dates: start: 20070312
  3. REMICADE [Suspect]
     Indication: CROHN^S DISEASE
     Route: 042
     Dates: start: 20070327
  4. AZATHIOPRINE [Suspect]
     Indication: CROHN^S DISEASE
     Dates: start: 200708, end: 200811
  5. COLCHICINE [Concomitant]
     Indication: BEHCET^S SYNDROME
     Dates: start: 200708
  6. HUMIRA [Concomitant]
     Indication: CROHN^S DISEASE
     Dates: start: 200903, end: 201004

REACTIONS (3)
  - Mycosis fungoides [Fatal]
  - Metastatic lymphoma [Fatal]
  - Epstein-Barr virus infection [Recovered/Resolved]
